FAERS Safety Report 17119801 (Version 1)
Quarter: 2019Q4

REPORT INFORMATION
  Report Type: Spontaneous
  Country: ES (occurrence: ES)
  Receive Date: 20191206
  Receipt Date: 20191206
  Transmission Date: 20200122
  Serious: Yes (Hospitalization)
  Sender: FDA-Public Use
  Company Number: ES-TEVA-2019-ES-1146469

PATIENT
  Age: 49 Year
  Sex: Female

DRUGS (1)
  1. TAMOXIFENO RATIOPHARM 20 MG, COMPRIMIDOS EFG , 60 COMPRIMIDOS [Suspect]
     Active Substance: TAMOXIFEN
     Indication: BREAST CANCER
     Dosage: 20 MG
     Route: 048
     Dates: start: 20170531, end: 20191016

REACTIONS (1)
  - Ischaemic cerebral infarction [Recovered/Resolved with Sequelae]

NARRATIVE: CASE EVENT DATE: 20191016
